FAERS Safety Report 6477773-X (Version None)
Quarter: 2009Q4

REPORT INFORMATION
  Report Type: 
  Country: None (occurrence: None)
  Receive Date: 20091207
  Receipt Date: 20091130
  Transmission Date: 20100525
  Serious: Yes (Death, Other)
  Sender: FDA-Public Use
  Company Number: US-ELI_LILLY_AND_COMPANY-US200912000314

PATIENT
  Sex: Male

DRUGS (2)
  1. EFFIENT [Suspect]
     Indication: ACUTE CORONARY SYNDROME
     Dosage: 60 MG, UNK
     Dates: start: 20091104, end: 20091104
  2. EFFIENT [Suspect]
     Dosage: 10 MG, DAILY (1/D)
     Dates: start: 20091105

REACTIONS (1)
  - DEATH [None]
